FAERS Safety Report 6108417-4 (Version None)
Quarter: 2009Q1

REPORT INFORMATION
  Report Type: 
  Country: None (occurrence: None)
  Receive Date: 20090309
  Receipt Date: 20090305
  Transmission Date: 20090719
  Serious: Yes (Death, Life-Threatening, Hospitalization, Other)
  Sender: FDA-Public Use
  Company Number: PHHY2009BR08133

PATIENT
  Age: 78 Year
  Sex: Female

DRUGS (4)
  1. DIOVAN [Suspect]
     Indication: HYPERTENSION
     Dosage: 80 MG, QD
     Route: 048
     Dates: start: 20080101
  2. SUSTRATE [Concomitant]
  3. AAS [Concomitant]
  4. METFORMIN [Concomitant]

REACTIONS (8)
  - BIOPSY [None]
  - CARDIOMEGALY [None]
  - DEPRESSED LEVEL OF CONSCIOUSNESS [None]
  - DIABETES MELLITUS [None]
  - HYPERGLYCAEMIA [None]
  - LUNG INFECTION [None]
  - LUNG NEOPLASM [None]
  - PNEUMONIA [None]
